FAERS Safety Report 9458355 (Version 2)
Quarter: 2013Q3

REPORT INFORMATION
  Report Type: Spontaneous
  Country: CH (occurrence: CH)
  Receive Date: 20130814
  Receipt Date: 20130816
  Transmission Date: 20140515
  Serious: Yes (Hospitalization)
  Sender: FDA-Public Use
  Company Number: CH-PFIZER INC-2013232197

PATIENT
  Age: 82 Year
  Sex: Male

DRUGS (13)
  1. TAZOBAC [Suspect]
     Indication: URINARY TRACT INFECTION
     Dosage: UNK
     Route: 040
     Dates: start: 20130409, end: 20130410
  2. AUGMENTIN [Suspect]
     Indication: BACTERIAL INFECTION
     Dosage: UNK
     Route: 048
     Dates: start: 20130313, end: 20130318
  3. AUGMENTIN [Suspect]
     Indication: URINARY TRACT INFECTION
     Dosage: 625 MG, 3X/DAY
     Route: 048
     Dates: start: 20130404, end: 20130409
  4. ROCEPHIN [Concomitant]
     Indication: URINARY TRACT INFECTION
     Dosage: ONCE DAILY (DOSE UNKNOWN)
     Route: 040
     Dates: start: 20130410, end: 20130414
  5. VENLAFAXINE [Concomitant]
     Indication: DEPRESSION
     Dosage: 75 MG ONCE DAILY
     Route: 048
     Dates: start: 201210, end: 20130410
  6. VOTUM [Concomitant]
     Indication: ESSENTIAL HYPERTENSION
     Dosage: 20 MG ONCE DAILY
     Route: 048
     Dates: start: 20130323
  7. CRESTOR [Concomitant]
     Indication: HYPERCHOLESTEROLAEMIA
     Dosage: 10 MG ONCE DAILY
     Route: 048
     Dates: start: 20130223
  8. GALVUS [Concomitant]
     Indication: TYPE 2 DIABETES MELLITUS
     Dosage: 50 MG ONCE DAILY
     Route: 048
     Dates: start: 20130405
  9. GLUCOPHAGE [Concomitant]
     Indication: TYPE 2 DIABETES MELLITUS
     Dosage: 500 MG, 2X/DAY
     Route: 048
     Dates: start: 20130404
  10. CALCIMAGON-D3 [Concomitant]
     Indication: VITAMIN D DEFICIENCY
     Dosage: 500 MG ONCE DAILY
     Route: 048
     Dates: start: 20130326
  11. VITAMIN B12 [Concomitant]
     Indication: VITAMIN B12 DEFICIENCY
     Dosage: WEEKLY AT AN UNKNOWN DOSE
     Route: 030
     Dates: start: 20130401
  12. VITAMIN B12 [Concomitant]
     Indication: ANAEMIA
  13. TRAMAL [Concomitant]
     Indication: PAIN
     Dosage: UNK
     Route: 048
     Dates: start: 20130313, end: 20130318

REACTIONS (1)
  - Rash maculo-papular [Recovered/Resolved]
